FAERS Safety Report 6887839-8 (Version None)
Quarter: 2010Q3

REPORT INFORMATION
  Report Type: 
  Country: None (occurrence: None)
  Receive Date: 20100708
  Receipt Date: 20090619
  Transmission Date: 20110219
  Serious: Yes (Other)
  Sender: FDA-Public Use
  Company Number: 2009231439

PATIENT
  Age: 55 Year
  Sex: Female
  Weight: 122.4 kg

DRUGS (7)
  1. CHANTIX [Suspect]
     Indication: SMOKING CESSATION THERAPY
     Dosage: 1 MG, 2X/DAY
     Dates: start: 20090418, end: 20090612
  2. ANTICOAGULANTS [Concomitant]
  3. PAXIL [Concomitant]
  4. WARFARIN SODIUM [Concomitant]
  5. DETROL LA [Concomitant]
  6. METFORMIN HCL [Concomitant]
  7. ACIPHEX [Concomitant]

REACTIONS (1)
  - SUICIDAL IDEATION [None]
